FAERS Safety Report 8822120 (Version 1)
Quarter: 2012Q4

REPORT INFORMATION
  Report Type: 
  Country: US (occurrence: US)
  Receive Date: 20121003
  Receipt Date: 20121003
  Transmission Date: 20130627
  Serious: Yes (Other)
  Sender: FDA-Public Use
  Company Number: US-JNJFOC-20120910895

PATIENT
  Age: 75 None
  Sex: Male
  Weight: 68.04 kg

DRUGS (11)
  1. XARELTO [Suspect]
     Indication: CEREBROVASCULAR ACCIDENT PROPHYLAXIS
     Route: 048
     Dates: start: 20120501
  2. XARELTO [Suspect]
     Indication: ATRIAL FIBRILLATION
     Route: 048
     Dates: start: 20120501
  3. ATIVAN [Concomitant]
     Indication: ANXIETY
     Route: 048
  4. ATIVAN [Concomitant]
     Indication: ANXIETY
     Route: 048
  5. INSPRA [Concomitant]
     Indication: HYPERTENSION
     Route: 048
  6. EXFORGE [Concomitant]
     Indication: HYPERTENSION
  7. NEXIUM [Concomitant]
     Indication: GASTRIC DISORDER
     Route: 048
  8. CLARITIN [Concomitant]
     Indication: MULTIPLE ALLERGIES
     Route: 048
  9. VITAMIN D3 [Concomitant]
     Indication: NUTRITIONAL SUPPORT
     Route: 048
  10. PAIN MEDICATION [Concomitant]
     Indication: ARTHRALGIA
  11. ALLERGY MEDICATION [Concomitant]
     Indication: MULTIPLE ALLERGIES
     Route: 050

REACTIONS (2)
  - Arrhythmia [Recovering/Resolving]
  - Pruritus generalised [Not Recovered/Not Resolved]
